FAERS Safety Report 6390400-5 (Version None)
Quarter: 2009Q4

REPORT INFORMATION
  Report Type: 
  Country: None (occurrence: None)
  Receive Date: 20091006
  Receipt Date: 20090928
  Transmission Date: 20100525
  Serious: Yes (Death)
  Sender: FDA-Public Use
  Company Number: JP-MERCK-0910USA00280

PATIENT

DRUGS (8)
  1. PEPCID [Suspect]
     Indication: VOMITING
     Route: 064
     Dates: start: 20080101
  2. PEPCID [Suspect]
     Indication: ABDOMINAL PAIN UPPER
     Route: 064
     Dates: start: 20080101
  3. PREDNISOLONE [Concomitant]
     Route: 064
  4. ASPIRIN [Concomitant]
     Route: 064
  5. NAFAMOSTAT [Concomitant]
     Route: 064
  6. ANTIMICROBIAL (UNSPECIFIED) [Concomitant]
     Route: 064
  7. GLOBULIN, IMMUNE [Concomitant]
     Route: 064
  8. PLATELET CONCENTRATE [Concomitant]
     Route: 064

REACTIONS (1)
  - INTRA-UTERINE DEATH [None]
